FAERS Safety Report 19551657 (Version 1)
Quarter: 2021Q3

REPORT INFORMATION
  Report Type: Report from Study
  Country: FR (occurrence: FR)
  Receive Date: 20210714
  Receipt Date: 20210714
  Transmission Date: 20211014
  Serious: Yes (Hospitalization)
  Sender: FDA-Public Use
  Company Number: FR-TAKEDA-2021TUS033786

PATIENT
  Age: 71 Year
  Sex: Male

DRUGS (10)
  1. TEDUGLUTIDE [Suspect]
     Active Substance: TEDUGLUTIDE
     Indication: SHORT-BOWEL SYNDROME
     Dosage: 3.4 MILLIGRAM, QD
     Route: 065
     Dates: start: 20210201
  2. TEDUGLUTIDE [Suspect]
     Active Substance: TEDUGLUTIDE
     Indication: SHORT-BOWEL SYNDROME
     Dosage: 3.4 MILLIGRAM, QD
     Route: 065
     Dates: start: 20210201
  3. TEDUGLUTIDE [Suspect]
     Active Substance: TEDUGLUTIDE
     Indication: SHORT-BOWEL SYNDROME
     Dosage: 3.4 MILLIGRAM, QD
     Route: 065
     Dates: start: 20210201
  4. DOXYCYCLINE. [Concomitant]
     Active Substance: DOXYCYCLINE
     Indication: ANTIBIOTIC THERAPY
     Dosage: 1 UNK
     Route: 065
  5. OXYNORMORO [Concomitant]
     Active Substance: OXYCODONE HYDROCHLORIDE
     Indication: PAIN PROPHYLAXIS
     Dosage: 1.0 UNK, PRN
     Route: 048
  6. FLAGYL [Concomitant]
     Active Substance: METRONIDAZOLE\METRONIDAZOLE HYDROCHLORIDE
     Dosage: 1 INTERNATIONAL UNIT
     Route: 065
  7. FLAGYL [Concomitant]
     Active Substance: METRONIDAZOLE\METRONIDAZOLE HYDROCHLORIDE
     Indication: ANTIBIOTIC THERAPY
     Dosage: 500 MILLIGRAM, BID (10D/2MONTH
     Route: 048
  8. TEDUGLUTIDE [Suspect]
     Active Substance: TEDUGLUTIDE
     Indication: SHORT-BOWEL SYNDROME
     Dosage: 3.4 MILLIGRAM, QD
     Route: 065
     Dates: start: 20210201
  9. PARACETAMOL [Concomitant]
     Active Substance: ACETAMINOPHEN
     Indication: PAIN PROPHYLAXIS
     Dosage: 1.0 UNK, PRN
     Route: 048
  10. NORFLOXACINE [Concomitant]
     Active Substance: NORFLOXACIN
     Indication: BACTERIAL INFECTION
     Dosage: 400 MILLIGRAM, 1/WEEK (7 DAYS/ 2 MONTHS
     Route: 048
     Dates: start: 20210428

REACTIONS (2)
  - Device breakage [Recovered/Resolved]
  - Abdominal pain [Not Recovered/Not Resolved]

NARRATIVE: CASE EVENT DATE: 202102
